FAERS Safety Report 7307654-0 (Version None)
Quarter: 2011Q1

REPORT INFORMATION
  Report Type: 
  Country: None (occurrence: None)
  Receive Date: 20110223
  Receipt Date: 20110208
  Transmission Date: 20110831
  Serious: Yes (Other)
  Sender: FDA-Public Use
  Company Number: GB-PFIZER INC-2011035410

PATIENT
  Age: 57 Year
  Sex: Male

DRUGS (4)
  1. INVESTIGATIONAL DRUG [Suspect]
  2. ATENOLOL [Concomitant]
     Dosage: UNK, 25 MG
  3. IBUPROFEN [Suspect]
  4. RAMIPRIL [Suspect]
     Dosage: UNK, 2.5 MG

REACTIONS (1)
  - RENAL TUBULAR NECROSIS [None]
